FAERS Safety Report 5262313-3 (Version None)
Quarter: 2007Q1

REPORT INFORMATION
  Report Type: 
  Country: None (occurrence: None)
  Receive Date: 20070312
  Receipt Date: 20070227
  Transmission Date: 20070707
  Serious: Yes (Hospitalization)
  Sender: FDA-Public Use
  Company Number: PHHO2007BE03964

PATIENT
  Age: 77 Year
  Sex: Female

DRUGS (7)
  1. EXELON [Suspect]
     Indication: DEMENTIA ALZHEIMER'S TYPE
     Dosage: 12 MG DAILY
     Route: 048
     Dates: start: 20050512
  2. PROLOPA [Concomitant]
  3. SERENASE [Concomitant]
  4. SOLIAN [Concomitant]
  5. CALCIUM [Concomitant]
  6. OMEPRAZOLE [Concomitant]
  7. LIPITOR [Concomitant]

REACTIONS (6)
  - ABDOMINAL PAIN [None]
  - ASTHENIA [None]
  - DECREASED APPETITE [None]
  - DYSURIA [None]
  - POLLAKIURIA [None]
  - POLYURIA [None]
